FAERS Safety Report 14236084 (Version 1)
Quarter: 2017Q4

REPORT INFORMATION
  Report Type: Spontaneous
  Country: US (occurrence: US)
  Receive Date: 20171129
  Receipt Date: 20171129
  Transmission Date: 20180321
  Serious: No
  Sender: FDA-Public Use
  Company Number: US-AUROBINDO-AUR-APL-2017-40012

PATIENT
  Age: 60 Year
  Sex: Female

DRUGS (1)
  1. FLUCONAZOLE TABLETS 150 MG [Suspect]
     Active Substance: FLUCONAZOLE
     Indication: FUNGAL INFECTION
     Route: 065

REACTIONS (5)
  - Pain [Unknown]
  - Feeling abnormal [Unknown]
  - Burning sensation [Unknown]
  - Skin exfoliation [Unknown]
  - Erythema [Unknown]
